FAERS Safety Report 7061643-2 (Version None)
Quarter: 2010Q4

REPORT INFORMATION
  Report Type: 
  Country: None (occurrence: None)
  Receive Date: 20101026
  Receipt Date: 20100602
  Transmission Date: 20110411
  Serious: No
  Sender: FDA-Public Use
  Company Number: US-ABBOTT-10P-163-0649249-00

PATIENT
  Sex: Female
  Weight: 69.462 kg

DRUGS (2)
  1. LUPRON DEPOT [Suspect]
     Indication: OVARIAN CYST
     Dates: start: 20100525
  2. IRON PILL [Concomitant]
     Indication: PRODUCT USED FOR UNKNOWN INDICATION

REACTIONS (2)
  - SENSORY DISTURBANCE [None]
  - VAGINAL HAEMORRHAGE [None]
